FAERS Safety Report 25750000 (Version 1)
Quarter: 2025Q3

REPORT INFORMATION
  Report Type: Report from Study
  Country: EU (occurrence: EU)
  Receive Date: 20250902
  Receipt Date: 20250902
  Transmission Date: 20251021
  Serious: Yes (Other)
  Sender: AUROBINDO
  Company Number: EU-ALKEM LABORATORIES LIMITED-DE-ALKEM-2025-08812

PATIENT
  Age: 47 Year
  Sex: Female

DRUGS (7)
  1. PREGABALIN [Suspect]
     Active Substance: PREGABALIN
     Indication: Partial seizures
     Route: 065
  2. PREGABALIN [Suspect]
     Active Substance: PREGABALIN
     Dosage: 100 MILLIGRAM, ONCE A DAY
     Route: 065
  3. LAMOTRIGINE [Suspect]
     Active Substance: LAMOTRIGINE
     Indication: Partial seizures
     Route: 065
  4. LAMOTRIGINE [Suspect]
     Active Substance: LAMOTRIGINE
     Dosage: 600 MILLIGRAM, ONCE A DAY
     Route: 065
  5. LAMOTRIGINE [Suspect]
     Active Substance: LAMOTRIGINE
     Dosage: 400 MILLIGRAM, ONCE A DAY
     Route: 065
  6. PERAMPANEL [Suspect]
     Active Substance: PERAMPANEL
     Indication: Partial seizures
     Route: 065
  7. PERAMPANEL [Suspect]
     Active Substance: PERAMPANEL
     Dosage: 4 MILLIGRAM, ONCE A DAY
     Route: 065

REACTIONS (1)
  - Drug ineffective [Unknown]
